FAERS Safety Report 8569910-8 (Version None)
Quarter: 2012Q3

REPORT INFORMATION
  Report Type: 
  Country: None (occurrence: None)
  Receive Date: 20120803
  Receipt Date: 20120213
  Transmission Date: 20120928
  Serious: No
  Sender: FDA-Public Use
  Company Number: US-ABBOTT-12P-163-0903908-00

PATIENT
  Sex: Female
  Weight: 46.308 kg

DRUGS (4)
  1. NIASPAN [Suspect]
     Dates: end: 20120203
  2. NIASPAN [Suspect]
     Indication: BLOOD CHOLESTEROL
  3. PLAVIX [Concomitant]
     Indication: PRODUCT USED FOR UNKNOWN INDICATION
  4. ASPIRIN [Concomitant]
     Indication: PRODUCT USED FOR UNKNOWN INDICATION

REACTIONS (2)
  - UNEVALUABLE EVENT [None]
  - PRURITUS [None]
